FAERS Safety Report 20882643 (Version 3)
Quarter: 2022Q4

REPORT INFORMATION
  Report Type: Spontaneous
  Country: US (occurrence: US)
  Receive Date: 20220527
  Receipt Date: 20221030
  Transmission Date: 20230113
  Serious: No
  Sender: FDA-Public Use
  Company Number: US-BRISTOL-MYERS SQUIBB COMPANY-2022-043137

PATIENT
  Age: 73 Year
  Sex: Male
  Weight: 62.1 kg

DRUGS (1)
  1. REVLIMID [Suspect]
     Active Substance: LENALIDOMIDE
     Indication: Plasma cell myeloma
     Dosage: DAILY X 21 DAYS ON AND 14 DAYS OFF?EXPIRATION DATE-30-04-2024
     Route: 048
     Dates: start: 202201

REACTIONS (6)
  - Swelling [Unknown]
  - Back pain [Not Recovered/Not Resolved]
  - Abdominal discomfort [Recovered/Resolved]
  - Pain in extremity [Unknown]
  - Glossodynia [Unknown]
  - Off label use [Unknown]
